FAERS Safety Report 5613742-7 (Version None)
Quarter: 2008Q1

REPORT INFORMATION
  Report Type: 
  Country: None (occurrence: None)
  Receive Date: 20080205
  Receipt Date: 20080122
  Transmission Date: 20080703
  Serious: Yes (Death, Hospitalization)
  Sender: FDA-Public Use
  Company Number: DE-AVENTIS-200713047DE

PATIENT

DRUGS (1)
  1. GLYBURIDE [Suspect]
     Indication: DIABETES MELLITUS
     Route: 048

REACTIONS (3)
  - COMA [None]
  - DEATH [None]
  - HYPOGLYCAEMIA [None]
